FAERS Safety Report 5200118-X (Version None)
Quarter: 2007Q1

REPORT INFORMATION
  Report Type: 
  Country: None (occurrence: None)
  Receive Date: 20070105
  Receipt Date: 20070102
  Transmission Date: 20070707
  Serious: Yes (Other)
  Sender: FDA-Public Use
  Company Number: DE-GLAXOSMITHKLINE-D0051920A

PATIENT
  Age: 41 Year
  Sex: Male

DRUGS (5)
  1. SEROXAT [Suspect]
     Route: 048
  2. CAMPRAL [Suspect]
     Route: 048
  3. DIAZEPAM [Suspect]
     Route: 048
  4. DISTRANEURIN [Suspect]
     Route: 048
  5. DOXEPIN HCL [Suspect]
     Route: 048

REACTIONS (2)
  - DRUG ABUSER [None]
  - DYSARTHRIA [None]
